FAERS Safety Report 10329691 (Version 3)
Quarter: 2014Q3

REPORT INFORMATION
  Report Type: Spontaneous
  Country: US (occurrence: US)
  Receive Date: 20140721
  Receipt Date: 20140911
  Transmission Date: 20150326
  Serious: Yes (Other)
  Sender: FDA-Public Use
  Company Number: PHEH2014US014184

PATIENT
  Age: 89 Year
  Sex: Female
  Weight: 44 kg

DRUGS (11)
  1. CALCIUM [Concomitant]
     Active Substance: CALCIUM
     Dosage: 1000 MG, DAILY
  2. RECLAST [Suspect]
     Active Substance: ZOLEDRONIC ACID
     Indication: OSTEOPOROSIS
     Dosage: UKN
     Route: 042
     Dates: start: 2011
  3. RECLAST [Suspect]
     Active Substance: ZOLEDRONIC ACID
     Dosage: UNK UKN, UNK
     Route: 042
     Dates: start: 2012
  4. PREDNISONE. [Concomitant]
     Active Substance: PREDNISONE
     Indication: ARTHRITIS
     Dosage: 2 MG, A DAY
     Route: 048
  5. SYNTHROID [Concomitant]
     Active Substance: LEVOTHYROXINE SODIUM
     Dosage: 50 MG, QD
     Route: 048
  6. WOMEN^S MULTI [Concomitant]
     Dosage: UNK UKN, UNK
  7. VITAMIN D [Concomitant]
     Active Substance: CHOLECALCIFEROL
     Dosage: UNK UKN, UNK
  8. MAGNESIUM [Concomitant]
     Active Substance: MAGNESIUM
     Dosage: UNK UKN, UNK
  9. RECLAST [Suspect]
     Active Substance: ZOLEDRONIC ACID
     Dosage: UNK, YEARLY
     Route: 042
     Dates: start: 20140731
  10. PREDNISONE. [Concomitant]
     Active Substance: PREDNISONE
     Indication: POLYMYALGIA RHEUMATICA
  11. ASPIRIN. [Concomitant]
     Active Substance: ASPIRIN
     Dosage: 81 MG, DAILY
     Route: 048

REACTIONS (23)
  - Alopecia [Unknown]
  - Oropharyngeal pain [Unknown]
  - Muscular weakness [Recovering/Resolving]
  - Hypertension [Unknown]
  - Hypoaesthesia [Unknown]
  - Diarrhoea [Recovering/Resolving]
  - Head injury [Unknown]
  - Nausea [Unknown]
  - Arthritis [Unknown]
  - Renal injury [Unknown]
  - Vitamin D increased [Unknown]
  - Pain [Unknown]
  - Malaise [Unknown]
  - Asthenia [Recovering/Resolving]
  - Hypertonic bladder [Unknown]
  - Paraesthesia [Recovering/Resolving]
  - Blood calcium increased [Unknown]
  - Dizziness [Unknown]
  - Back pain [Recovering/Resolving]
  - Road traffic accident [Unknown]
  - Pain in extremity [Unknown]
  - Bone density decreased [Unknown]
  - Gait disturbance [Unknown]

NARRATIVE: CASE EVENT DATE: 20140805
